FAERS Safety Report 18856536 (Version 3)
Quarter: 2025Q3

REPORT INFORMATION
  Report Type: Spontaneous
  Country: EU (occurrence: EU)
  Receive Date: 20210207
  Receipt Date: 20250718
  Transmission Date: 20251021
  Serious: Yes (Hospitalization, Other)
  Sender: AUROBINDO
  Company Number: EU-TEVA-2021-RO-1871387

PATIENT
  Age: 22 Year
  Sex: Male

DRUGS (5)
  1. IBUPROFEN [Suspect]
     Active Substance: IBUPROFEN
     Indication: Arthritis
     Route: 065
  2. OLANZAPINE [Suspect]
     Active Substance: OLANZAPINE
     Indication: Acute psychosis
     Dosage: 5 MILLIGRAM, ONCE A DAY (ACUTE AND TRANSIENT PSYCHOTIC DISORDER )
     Route: 065
  3. OLANZAPINE [Suspect]
     Active Substance: OLANZAPINE
     Dosage: 15 MILLIGRAM, ONCE A DAY
     Route: 065
  4. LORAZEPAM [Suspect]
     Active Substance: LORAZEPAM
     Indication: Acute psychosis
     Dosage: 1 MILLIGRAM, 3 TIMES A DAY
     Route: 065
  5. LORAZEPAM [Suspect]
     Active Substance: LORAZEPAM
     Indication: Anxiolytic therapy

REACTIONS (19)
  - Sepsis [Recovered/Resolved]
  - Pyrexia [Recovered/Resolved]
  - Therapeutic product effect incomplete [Recovered/Resolved]
  - Erectile dysfunction [Recovered/Resolved]
  - Myalgia [Recovered/Resolved]
  - Photophobia [Recovered/Resolved]
  - Blood creatine phosphokinase increased [Recovered/Resolved]
  - Neutrophilia [Recovered/Resolved]
  - Tachycardia [Recovered/Resolved]
  - Leukocytosis [Recovered/Resolved]
  - Transaminases increased [Recovered/Resolved]
  - Blood urea increased [Recovered/Resolved]
  - Chest pain [Recovered/Resolved]
  - Blood bilirubin increased [Recovered/Resolved]
  - Jaundice [Recovered/Resolved]
  - Arthralgia [Recovered/Resolved]
  - Arthritis [Recovered/Resolved]
  - Hypotension [Recovered/Resolved]
  - Drug ineffective [Recovered/Resolved]
